FAERS Safety Report 25743751 (Version 1)
Quarter: 2025Q3

REPORT INFORMATION
  Report Type: Spontaneous
  Country: AU (occurrence: AU)
  Receive Date: 20250831
  Receipt Date: 20250831
  Transmission Date: 20251021
  Serious: Yes (Hospitalization)
  Sender: SANOFI AVENTIS
  Company Number: AU-SA-2025SA237378

PATIENT
  Age: 83 Year
  Sex: Female

DRUGS (2)
  1. DUPIXENT [Suspect]
     Active Substance: DUPILUMAB
     Indication: Asthma
  2. DUPIXENT [Suspect]
     Active Substance: DUPILUMAB

REACTIONS (5)
  - Dyspnoea [Not Recovered/Not Resolved]
  - Periorbital swelling [Not Recovered/Not Resolved]
  - White blood cell count increased [Unknown]
  - Incorrect dose administered [Unknown]
  - Product storage error [Unknown]

NARRATIVE: CASE EVENT DATE: 20250701
